FAERS Safety Report 11581642 (Version 1)
Quarter: 2015Q4

REPORT INFORMATION
  Report Type: Spontaneous
  Country: US (occurrence: US)
  Receive Date: 20151001
  Receipt Date: 20151001
  Transmission Date: 20160304
  Serious: No
  Sender: FDA-Public Use
  Company Number: US-ROCHE-665201

PATIENT
  Age: 53 Year
  Sex: Male
  Weight: 96.2 kg

DRUGS (3)
  1. PEGASYS [Suspect]
     Active Substance: PEGINTERFERON ALFA-2A
     Indication: HEPATITIS C
     Dosage: FORM: PRE FILLED SYRINGE
     Route: 058
     Dates: start: 20090515, end: 20091123
  2. COPEGUS [Suspect]
     Active Substance: RIBAVIRIN
     Indication: HEPATITIS C
     Dosage: DIVIDED DOSES
     Route: 048
     Dates: start: 20090515, end: 20091123
  3. FLUNISOLIDE. [Concomitant]
     Active Substance: FLUNISOLIDE
     Dosage: FORMULATION: NASAL INHALER; DOSAGE: ONE SPRAY TWICE DAILY
     Route: 065

REACTIONS (3)
  - Dry skin [Recovered/Resolved]
  - Epistaxis [Unknown]
  - Rash [Recovered/Resolved]

NARRATIVE: CASE EVENT DATE: 200905
